FAERS Safety Report 25346110 (Version 1)
Quarter: 2025Q2

REPORT INFORMATION
  Report Type: Report from Study
  Country: GB (occurrence: GB)
  Receive Date: 20250522
  Receipt Date: 20250522
  Transmission Date: 20250716
  Serious: Yes (Other)
  Sender: ABBVIE
  Company Number: GB-ABBVIE-6288851

PATIENT
  Sex: Female

DRUGS (2)
  1. SKYRIZI [Suspect]
     Active Substance: RISANKIZUMAB-RZAA
     Indication: Psoriasis
     Dosage: DOSE FORM- SOLUTION FOR INJECTION IN PRE-FILLED PEN
     Route: 058
  2. SKYRIZI [Suspect]
     Active Substance: RISANKIZUMAB-RZAA
     Dosage: DOSE FORM- SOLUTION FOR INJECTION IN PRE-FILLED PEN
     Route: 058

REACTIONS (3)
  - Weight decreased [Unknown]
  - Psoriasis [Unknown]
  - Arthropathy [Recovering/Resolving]
